FAERS Safety Report 13086832 (Version 2)
Quarter: 2017Q1

REPORT INFORMATION
  Report Type: Spontaneous
  Country: GB (occurrence: GB)
  Receive Date: 20170104
  Receipt Date: 20170106
  Transmission Date: 20170428
  Serious: Yes (Hospitalization)
  Sender: FDA-Public Use
  Company Number: GB-ASTRAZENECA-2017SE00017

PATIENT
  Age: 90 Year
  Sex: Female

DRUGS (9)
  1. CODEINE [Concomitant]
     Active Substance: CODEINE
  2. PARACETAMOL [Concomitant]
     Active Substance: ACETAMINOPHEN
  3. BUMETANIDE. [Concomitant]
     Active Substance: BUMETANIDE
     Dates: end: 20161216
  4. ROPINIROLE. [Concomitant]
     Active Substance: ROPINIROLE
  5. EPLERENONE. [Suspect]
     Active Substance: EPLERENONE
     Route: 065
     Dates: end: 20161216
  6. ISOSORBIDE MONONITRATE. [Concomitant]
     Active Substance: ISOSORBIDE MONONITRATE
  7. WARFARIN [Concomitant]
     Active Substance: WARFARIN
  8. BLOPRESS [Suspect]
     Active Substance: CANDESARTAN CILEXETIL
     Indication: PRODUCT USED FOR UNKNOWN INDICATION
     Route: 048
     Dates: end: 20161216
  9. SIMVASTATIN. [Concomitant]
     Active Substance: SIMVASTATIN

REACTIONS (3)
  - Malaise [Unknown]
  - C-reactive protein increased [Unknown]
  - Hyperkalaemia [Recovering/Resolving]
